FAERS Safety Report 21844888 (Version 3)
Quarter: 2023Q1

REPORT INFORMATION
  Report Type: Report from Study
  Country: FR (occurrence: FR)
  Receive Date: 20230110
  Receipt Date: 20230210
  Transmission Date: 20230417
  Serious: Yes (Death, Hospitalization)
  Sender: FDA-Public Use
  Company Number: FR-JNJFOC-20230105546

PATIENT
  Age: 72 Year
  Sex: Female
  Weight: 62 kg

DRUGS (17)
  1. AMIVANTAMAB [Suspect]
     Active Substance: AMIVANTAMAB
     Indication: Non-small cell lung cancer
     Dosage: 700 (UNIT NOT PROVIDED)
     Route: 042
     Dates: start: 20220104, end: 20221206
  2. VITAMIN C [Concomitant]
     Active Substance: ASCORBIC ACID
  3. DULOXETINE [Concomitant]
     Active Substance: DULOXETINE
  4. DULOXETINE [Concomitant]
     Active Substance: DULOXETINE
     Dates: start: 20230126
  5. ESOMEPRAZOLE [Concomitant]
     Active Substance: ESOMEPRAZOLE
  6. ACETAMINOPHEN [Concomitant]
     Active Substance: ACETAMINOPHEN
  7. MORPHINE [Concomitant]
     Active Substance: MORPHINE
  8. BUDESONIDE [Concomitant]
     Active Substance: BUDESONIDE
  9. DOXYCYCLINE [Concomitant]
     Active Substance: DOXYCYCLINE
     Dates: end: 20230104
  10. CLOBETASOL PROPIONATE [Concomitant]
     Active Substance: CLOBETASOL PROPIONATE
  11. CLOBETASOL PROPIONATE [Concomitant]
     Active Substance: CLOBETASOL PROPIONATE
     Dates: start: 20230105
  12. SPIRONOLACTONE [Concomitant]
     Active Substance: SPIRONOLACTONE
     Dates: end: 20221229
  13. CELECOXIB [Concomitant]
     Active Substance: CELECOXIB
     Dates: end: 20230103
  14. GLYCERIN\MINERAL OIL\PETROLATUM [Concomitant]
     Active Substance: GLYCERIN\MINERAL OIL\PETROLATUM
  15. GLYCERIN\MINERAL OIL\PETROLATUM [Concomitant]
     Active Substance: GLYCERIN\MINERAL OIL\PETROLATUM
     Dates: start: 20230105
  16. AMIDON [Concomitant]
  17. MIDAZOLAM [Concomitant]
     Active Substance: MIDAZOLAM
     Dates: end: 20230127

REACTIONS (2)
  - Sepsis [Fatal]
  - Rash [Recovered/Resolved]

NARRATIVE: CASE EVENT DATE: 20230103
